FAERS Safety Report 8950357 (Version 6)
Quarter: 2013Q4

REPORT INFORMATION
  Report Type: Spontaneous
  Country: US (occurrence: US)
  Receive Date: 20121207
  Receipt Date: 20131127
  Transmission Date: 20140711
  Serious: Yes (Other)
  Sender: FDA-Public Use
  Company Number: US-009507513-1211USA012837

PATIENT
  Sex: Female
  Weight: 59.86 kg

DRUGS (19)
  1. FOSAMAX [Suspect]
     Indication: OSTEOPENIA
     Dosage: UNK
     Route: 048
     Dates: start: 1995, end: 201012
  2. FOSAMAX [Suspect]
     Indication: OSTEOPOROSIS
     Dosage: UNK
     Route: 048
     Dates: start: 200306, end: 20110308
  3. FOSAMAX [Suspect]
     Indication: PROPHYLAXIS
     Dosage: 5 MG, UNK
     Route: 048
  4. FOSAMAX [Suspect]
     Dosage: 40 MG, QW
     Route: 048
     Dates: start: 199701
  5. FOSAMAX PLUS D [Suspect]
     Indication: OSTEOPENIA
     Dosage: UNK
     Route: 048
     Dates: end: 2010
  6. FOSAMAX PLUS D [Suspect]
     Indication: OSTEOPOROSIS
  7. FOSAMAX PLUS D [Suspect]
     Indication: PROPHYLAXIS
  8. ACTONEL [Suspect]
     Indication: OSTEOPENIA
     Dosage: 30 MG, QW
     Route: 048
     Dates: start: 2001, end: 200306
  9. ACTONEL [Suspect]
     Indication: OSTEOPOROSIS
  10. ACTONEL [Suspect]
     Indication: PROPHYLAXIS
  11. VITAMINS (UNSPECIFIED) [Concomitant]
     Dosage: 1 DF, QD
  12. VITAMIN D (UNSPECIFIED) [Concomitant]
     Dosage: 50000 IU, QW
  13. VITAMIN B (UNSPECIFIED) [Concomitant]
  14. CALCIUM (UNSPECIFIED) [Concomitant]
     Dosage: 1200 - 1800 MG QD
  15. CHROMIUM (UNSPECIFIED) [Concomitant]
  16. MAGNESIUM (UNSPECIFIED) [Concomitant]
  17. Q10 QUATRAL [Concomitant]
  18. SYNTHROID [Concomitant]
     Dosage: 50 MICROGRAM, QD
  19. TAMOXIFEN CITRATE [Concomitant]
     Dosage: UNK
     Dates: start: 1995, end: 201011

REACTIONS (82)
  - Intramedullary rod insertion [Unknown]
  - Cholecystectomy [Unknown]
  - Carcinoma in situ [Unknown]
  - Mastectomy [Unknown]
  - Rotator cuff repair [Unknown]
  - Femur fracture [Unknown]
  - Arthropathy [Unknown]
  - Vitamin D deficiency [Unknown]
  - Adverse event [Unknown]
  - Body height decreased [Unknown]
  - Foot fracture [Recovered/Resolved]
  - Foot fracture [Recovering/Resolving]
  - Multiple fractures [Unknown]
  - Vulvovaginal mycotic infection [Unknown]
  - Pollakiuria [Unknown]
  - Shoulder operation [Unknown]
  - Periarthritis [Unknown]
  - Joint dislocation [Unknown]
  - Skin lesion [Unknown]
  - Goitre [Unknown]
  - Foot deformity [Unknown]
  - Hyperlipidaemia [Unknown]
  - Blood homocysteine increased [Unknown]
  - Varicose vein [Unknown]
  - Dry skin [Unknown]
  - Mitral valve prolapse [Unknown]
  - Synovial cyst [Unknown]
  - Foot fracture [Unknown]
  - Bronchitis [Unknown]
  - Blood insulin increased [Unknown]
  - Urinary tract infection [Unknown]
  - Foot fracture [Unknown]
  - Foot fracture [Recovered/Resolved]
  - Tendon pain [Unknown]
  - Limb operation [Unknown]
  - Limb operation [Unknown]
  - Osteoarthritis [Unknown]
  - Periarthritis [Unknown]
  - C-reactive protein increased [Unknown]
  - Ligament sprain [Unknown]
  - Limb injury [Unknown]
  - Macular fibrosis [Unknown]
  - Ligament sprain [Unknown]
  - Macular degeneration [Unknown]
  - Eye disorder [Unknown]
  - Myositis [Unknown]
  - Anaemia [Unknown]
  - Smear cervix abnormal [Unknown]
  - Herpes simplex [Unknown]
  - Foot deformity [Unknown]
  - Bone marrow oedema [Unknown]
  - Osteoarthritis [Unknown]
  - Ligament injury [Unknown]
  - Osteochondrosis [Unknown]
  - Gallbladder operation [Unknown]
  - Limb operation [Unknown]
  - Glucose tolerance impaired [Unknown]
  - Road traffic accident [Unknown]
  - Pain [Unknown]
  - Radiotherapy [Unknown]
  - Ocular toxicity [Unknown]
  - Impaired healing [Unknown]
  - Ligament sprain [Unknown]
  - Meniscus injury [Unknown]
  - Synovial cyst [Unknown]
  - Foot fracture [Not Recovered/Not Resolved]
  - Pain in extremity [Unknown]
  - Pain in extremity [Unknown]
  - Back pain [Unknown]
  - Myalgia [Unknown]
  - Vomiting [Unknown]
  - Urticaria [Unknown]
  - Joint swelling [Unknown]
  - Back pain [Not Recovered/Not Resolved]
  - Pain in extremity [Unknown]
  - Pain in extremity [Unknown]
  - Dyspepsia [Unknown]
  - Rash [Unknown]
  - Drug ineffective [Unknown]
  - Gastrooesophageal reflux disease [Unknown]
  - Arthralgia [Unknown]
  - Pain in extremity [Not Recovered/Not Resolved]
